FAERS Safety Report 7786476-0 (Version None)
Quarter: 2011Q3

REPORT INFORMATION
  Report Type: 
  Country: None (occurrence: None)
  Receive Date: 20110927
  Receipt Date: 20110921
  Transmission Date: 20111222
  Serious: Yes (Hospitalization)
  Sender: FDA-Public Use
  Company Number: 2011SP030233

PATIENT
  Age: 40 Year
  Sex: Female

DRUGS (2)
  1. REBETOL [Suspect]
     Indication: HEPATITIS C
     Dosage: PO
     Route: 048
  2. INTERFERON [Suspect]
     Indication: HEPATITIS C
     Dosage: INDRP
     Route: 032

REACTIONS (1)
  - CEREBRAL HAEMORRHAGE [None]
